FAERS Safety Report 7427590-9 (Version None)
Quarter: 2011Q2

REPORT INFORMATION
  Report Type: 
  Country: None (occurrence: None)
  Receive Date: 20110420
  Receipt Date: 20110407
  Transmission Date: 20111010
  Serious: Yes (Other)
  Sender: FDA-Public Use
  Company Number: DE-MYLANLABS-2011S1007334

PATIENT
  Sex: Male

DRUGS (9)
  1. AMLODIPINE [Suspect]
     Indication: PRODUCT USED FOR UNKNOWN INDICATION
     Route: 048
     Dates: start: 20010101
  2. SIMVASTATIN [Concomitant]
     Indication: PRODUCT USED FOR UNKNOWN INDICATION
  3. CLOPIDOGREL STADA [Concomitant]
     Indication: PRODUCT USED FOR UNKNOWN INDICATION
  4. ISDN AL [Concomitant]
     Indication: PRODUCT USED FOR UNKNOWN INDICATION
  5. ZOPICLON [Concomitant]
     Indication: PRODUCT USED FOR UNKNOWN INDICATION
  6. MIRTAZAPIN AL [Concomitant]
     Indication: PRODUCT USED FOR UNKNOWN INDICATION
  7. ASS 100 [Concomitant]
     Indication: PRODUCT USED FOR UNKNOWN INDICATION
  8. BISOPLUS STADA [Concomitant]
     Indication: PRODUCT USED FOR UNKNOWN INDICATION
     Dosage: 10/25 MG STRENGTH
  9. LOSARTAN STADA [Concomitant]
     Indication: PRODUCT USED FOR UNKNOWN INDICATION

REACTIONS (8)
  - PSORIASIS [None]
  - HEADACHE [None]
  - GINGIVAL BLEEDING [None]
  - TINNITUS [None]
  - MALAISE [None]
  - VISUAL IMPAIRMENT [None]
  - ABDOMINAL PAIN UPPER [None]
  - RENAL PAIN [None]
